FAERS Safety Report 8018718-0 (Version None)
Quarter: 2012Q1

REPORT INFORMATION
  Report Type: 
  Country: None (occurrence: None)
  Receive Date: 20120103
  Receipt Date: 20120103
  Transmission Date: 20120608
  Serious: Yes (Life-Threatening, Hospitalization)
  Sender: FDA-Public Use
  Company Number: None

PATIENT
  Age: 66 Year
  Sex: Female
  Weight: 75.749 kg

DRUGS (1)
  1. CIDOFOVIR [Suspect]
     Indication: PAPILLOMA VIRAL INFECTION
     Dosage: UNKNOWN
     Route: 041
     Dates: start: 20080101, end: 20081101

REACTIONS (15)
  - BEDRIDDEN [None]
  - NERVOUS SYSTEM DISORDER [None]
  - LETHARGY [None]
  - AMNESIA [None]
  - DECREASED APPETITE [None]
  - RETCHING [None]
  - DIZZINESS [None]
  - TREMOR [None]
  - ABASIA [None]
  - WEIGHT DECREASED [None]
  - CONFUSIONAL STATE [None]
  - APHAGIA [None]
  - DYSSTASIA [None]
  - ENCEPHALITIS [None]
  - VOMITING [None]
